FAERS Safety Report 10198435 (Version 1)
Quarter: 2014Q2

REPORT INFORMATION
  Report Type: Spontaneous
  Country: US (occurrence: US)
  Receive Date: 20140527
  Receipt Date: 20140527
  Transmission Date: 20141212
  Serious: No
  Sender: FDA-Public Use
  Company Number: US-NOVEN-13US007120

PATIENT
  Age: 14 Year
  Sex: Male

DRUGS (4)
  1. DAYTRANA [Suspect]
     Indication: ATTENTION DEFICIT/HYPERACTIVITY DISORDER
     Dosage: 10 MG, UNK
     Route: 062
     Dates: start: 20130601, end: 201306
  2. DAYTRANA [Suspect]
     Dosage: 2 X 10MG
     Route: 062
     Dates: start: 201306, end: 201306
  3. DAYTRANA [Suspect]
     Dosage: 3 X 10MG
     Route: 062
     Dates: start: 201306, end: 201306
  4. DAYTRANA [Suspect]
     Dosage: 30 MG, UNK
     Route: 062
     Dates: start: 20130612

REACTIONS (5)
  - Wrong technique in drug usage process [Recovered/Resolved]
  - Drug prescribing error [Recovered/Resolved]
  - Incorrect drug administration duration [Unknown]
  - Product quality issue [Not Recovered/Not Resolved]
  - No adverse event [None]
